FAERS Safety Report 9714089 (Version 2)
Quarter: 2015Q3

REPORT INFORMATION
  Report Type: Spontaneous
  Country: US (occurrence: US)
  Receive Date: 20131126
  Receipt Date: 20150803
  Transmission Date: 20151125
  Serious: No
  Sender: FDA-Public Use
  Company Number: US-GILEAD-2008-0018835

PATIENT
  Age: 11 Year
  Sex: Male
  Weight: 34.02 kg

DRUGS (14)
  1. IRON [Concomitant]
     Active Substance: IRON
  2. LASIX [Concomitant]
     Active Substance: FUROSEMIDE
  3. COZAAR [Concomitant]
     Active Substance: LOSARTAN POTASSIUM
  4. REVATIO [Concomitant]
     Active Substance: SILDENAFIL CITRATE
  5. PULMOZYME [Concomitant]
     Active Substance: DORNASE ALFA
  6. FLOVENT [Concomitant]
     Active Substance: FLUTICASONE PROPIONATE
  7. COUMADIN [Concomitant]
     Active Substance: WARFARIN SODIUM
  8. MULTIVITAMIN [Concomitant]
     Active Substance: VITAMINS
  9. LETAIRIS [Suspect]
     Active Substance: AMBRISENTAN
     Indication: PULMONARY ARTERIAL HYPERTENSION
     Route: 048
     Dates: start: 20080830
  10. POTASSIUM CHLORIDE. [Concomitant]
     Active Substance: POTASSIUM CHLORIDE
  11. VENTAVIS [Concomitant]
     Active Substance: ILOPROST
  12. ALBUTEROL. [Concomitant]
     Active Substance: ALBUTEROL
  13. ASPIRIN. [Concomitant]
     Active Substance: ASPIRIN
  14. AZITHROMYCIN [Concomitant]
     Active Substance: AZITHROMYCIN ANHYDROUS

REACTIONS (2)
  - Dizziness [None]
  - White blood cell count decreased [None]
